FAERS Safety Report 5679821-3 (Version None)
Quarter: 2008Q1

REPORT INFORMATION
  Report Type: 
  Country: None (occurrence: None)
  Receive Date: 20080324
  Receipt Date: 20080312
  Transmission Date: 20080703
  Serious: Yes (Death, Hospitalization, Other)
  Sender: FDA-Public Use
  Company Number: 2006SP000065

PATIENT
  Age: 72 Year
  Sex: Female
  Weight: 63.5 kg

DRUGS (21)
  1. INTEGRILIN [Suspect]
     Indication: STENT PLACEMENT
     Dosage: 5.6 ML; ONCE; INBO; 3.8 ML; QH; INDRP; 5.6 ML; ONCE; INBO
     Route: 040
     Dates: start: 20040818, end: 20040818
  2. INTEGRILIN [Suspect]
     Indication: STENT PLACEMENT
     Dosage: 5.6 ML; ONCE; INBO; 3.8 ML; QH; INDRP; 5.6 ML; ONCE; INBO
     Route: 040
     Dates: start: 20040818, end: 20040818
  3. INTEGRILIN [Suspect]
     Indication: STENT PLACEMENT
     Dosage: 5.6 ML; ONCE; INBO; 3.8 ML; QH; INDRP; 5.6 ML; ONCE; INBO
     Route: 040
     Dates: start: 20040818, end: 20040818
  4. LOVENOX [Suspect]
     Indication: MYOCARDIAL INFARCTION
     Dosage: 80 MG; ONCE; SC
     Route: 058
     Dates: start: 20040818, end: 20040818
  5. TENECTEPLASE [Suspect]
     Indication: MYOCARDIAL INFARCTION
     Dosage: 50 MG; ONCE; IV
     Route: 042
     Dates: start: 20040818, end: 20040818
  6. ASPIRIN [Suspect]
     Indication: MYOCARDIAL INFARCTION
     Dosage: 325 MG; ONCE;
     Dates: start: 20040818, end: 20040818
  7. PLAVIX [Suspect]
     Indication: MYOCARDIAL INFARCTION
     Dosage: 600 MG; ONCE
     Dates: start: 20040818, end: 20040818
  8. HEPARIN [Suspect]
     Indication: DRUG USE FOR UNKNOWN INDICATION
     Dates: start: 20040818, end: 20040818
  9. SODIUM CHLORIDE [Concomitant]
  10. VERSED [Concomitant]
  11. FENTANYL [Concomitant]
  12. LOPRESSOR [Concomitant]
  13. LIPITOR [Concomitant]
  14. CAPTOPRIL [Concomitant]
  15. PAXIL [Concomitant]
  16. PROTONIX [Concomitant]
  17. NITROGLYCERIN [Concomitant]
  18. TYLENOL (CAPLET) [Concomitant]
  19. AMBIEN [Concomitant]
  20. COLACE [Concomitant]
  21. DARVOCET-N [Concomitant]

REACTIONS (38)
  - AGITATION [None]
  - AORTIC ARTERIOSCLEROSIS [None]
  - AORTIC VALVE INCOMPETENCE [None]
  - ARTERIOSCLEROSIS CORONARY ARTERY [None]
  - BLOOD CULTURE POSITIVE [None]
  - BRADYCARDIA [None]
  - BRAIN HERNIATION [None]
  - BRONCHIOLITIS [None]
  - CEREBRAL ARTERIOSCLEROSIS [None]
  - CHOLESTEROSIS [None]
  - CONFUSIONAL STATE [None]
  - EXTRADURAL HAEMATOMA [None]
  - FUNGAL INFECTION [None]
  - GENERAL PHYSICAL HEALTH DETERIORATION [None]
  - HAEMORRHAGE INTRACRANIAL [None]
  - HEPATIC STEATOSIS [None]
  - HYPERGLYCAEMIA [None]
  - INTRACRANIAL HAEMATOMA [None]
  - LEIOMYOMA [None]
  - MENINGITIS VIRAL [None]
  - MITRAL VALVE INCOMPETENCE [None]
  - NAUSEA [None]
  - NEPHROSCLEROSIS [None]
  - PAIN [None]
  - PANCREATIC DISORDER [None]
  - PLEURAL ADHESION [None]
  - PNEUMONIA [None]
  - PULMONARY OEDEMA [None]
  - PUPILS UNEQUAL [None]
  - RENAL CYST [None]
  - REPERFUSION ARRHYTHMIA [None]
  - SERRATIA INFECTION [None]
  - SPUTUM CULTURE POSITIVE [None]
  - STAPHYLOCOCCAL INFECTION [None]
  - SUBDURAL HAEMORRHAGE [None]
  - TACHYCARDIA [None]
  - TACHYPNOEA [None]
  - UTERINE LEIOMYOMA [None]
